FAERS Safety Report 23670256 (Version 2)
Quarter: 2024Q2

REPORT INFORMATION
  Report Type: Spontaneous
  Country: US (occurrence: US)
  Receive Date: 20240325
  Receipt Date: 20240409
  Transmission Date: 20240715
  Serious: No
  Sender: FDA-Public Use
  Company Number: US-SA-SAC20240319000665

PATIENT
  Age: 11 Year
  Sex: Male

DRUGS (2)
  1. ALPROLIX [Suspect]
     Active Substance: EFTRENONACOG ALFA
     Indication: Factor IX deficiency
     Dosage: 3250 IU (2925-3575), QW
     Route: 041
     Dates: start: 201310
  2. ALPROLIX [Suspect]
     Active Substance: EFTRENONACOG ALFA
     Indication: Factor IX deficiency
     Dosage: 3250 IU (2925-3575), QW
     Route: 041
     Dates: start: 201310

REACTIONS (5)
  - Traumatic haemorrhage [Unknown]
  - Fall [Unknown]
  - Joint injury [Unknown]
  - Arthralgia [Unknown]
  - Haemorrhage [Recovered/Resolved]

NARRATIVE: CASE EVENT DATE: 20240313
